FAERS Safety Report 15058291 (Version 1)
Quarter: 2018Q2

REPORT INFORMATION
  Report Type: Spontaneous
  Country: US (occurrence: US)
  Receive Date: 20180625
  Receipt Date: 20180625
  Transmission Date: 20180711
  Serious: Yes (Other)
  Sender: FDA-Public Use
  Company Number: US-BEH-2018092006

PATIENT
  Age: 39 Year
  Sex: Female
  Weight: 71.2 kg

DRUGS (20)
  1. HEPARIN [Concomitant]
     Active Substance: HEPARIN SODIUM
  2. OMEGA 3-6-9                        /01333901/ [Concomitant]
     Active Substance: OMEGA-3 FATTY ACIDS
  3. XYZAL [Concomitant]
     Active Substance: LEVOCETIRIZINE DIHYDROCHLORIDE
  4. SODIUM CHLORIDE. [Concomitant]
     Active Substance: SODIUM CHLORIDE
  5. NYQUIL COLD AND FLU [Concomitant]
     Active Substance: ACETAMINOPHEN\DEXTROMETHORPHAN HYDROBROMIDE\DOXYLAMINE SUCCINATE
  6. CYCLOBENZAPRINE. [Concomitant]
     Active Substance: CYCLOBENZAPRINE
  7. QUETIAPINE. [Concomitant]
     Active Substance: QUETIAPINE
  8. VITAMIN C [Concomitant]
     Active Substance: ASCORBIC ACID
  9. ABILIFY [Concomitant]
     Active Substance: ARIPIPRAZOLE
  10. EPINEPHRINE. [Concomitant]
     Active Substance: EPINEPHRINE
  11. MULTIVITAMINS [Concomitant]
     Active Substance: VITAMINS
  12. HAEGARDA [Suspect]
     Active Substance: HUMAN C1-ESTERASE INHIBITOR
     Indication: HEREDITARY ANGIOEDEMA
     Dosage: UNK
     Route: 058
  13. HAEGARDA [Suspect]
     Active Substance: HUMAN C1-ESTERASE INHIBITOR
     Indication: PROPHYLAXIS
     Dosage: 4390 IU, BIW
     Route: 058
     Dates: start: 20180105
  14. MUCINEX [Concomitant]
     Active Substance: GUAIFENESIN
  15. DELSYM [Concomitant]
     Active Substance: DEXTROMETHORPHAN
  16. TRAMADOL. [Concomitant]
     Active Substance: TRAMADOL
  17. LORAZEPAM. [Concomitant]
     Active Substance: LORAZEPAM
  18. EPINEPHRINE. [Concomitant]
     Active Substance: EPINEPHRINE
  19. HYDROCHLOROTHIAZIDE. [Concomitant]
     Active Substance: HYDROCHLOROTHIAZIDE
  20. CIMETIDINE [Concomitant]
     Active Substance: CIMETIDINE

REACTIONS (1)
  - Catheter removal [Unknown]

NARRATIVE: CASE EVENT DATE: 20180608
